FAERS Safety Report 11087730 (Version 1)
Quarter: 2015Q2

REPORT INFORMATION
  Report Type: Spontaneous
  Country: US (occurrence: US)
  Receive Date: 20150504
  Receipt Date: 20150504
  Transmission Date: 20150821
  Serious: Yes (Other)
  Sender: FDA-Public Use
  Company Number: US-PFIZER INC-2015139280

PATIENT
  Sex: Female

DRUGS (2)
  1. VOLTAREN [Suspect]
     Active Substance: DICLOFENAC SODIUM
     Indication: LIPOATROPHY
     Dosage: UNK, 1X/DAY
     Route: 061
  2. ADVIL [Suspect]
     Active Substance: IBUPROFEN
     Indication: LIPOATROPHY
     Dosage: UNK

REACTIONS (4)
  - Therapeutic response changed [Unknown]
  - Inappropriate schedule of drug administration [Unknown]
  - Hyponatraemia [Unknown]
  - Off label use [Unknown]
